FAERS Safety Report 6751884-3 (Version None)
Quarter: 2010Q2

REPORT INFORMATION
  Report Type: 
  Country: None (occurrence: None)
  Receive Date: 20100602
  Receipt Date: 20100525
  Transmission Date: 20101027
  Serious: Yes (Other)
  Sender: FDA-Public Use
  Company Number: ES-JNJFOC-20100510954

PATIENT

DRUGS (3)
  1. ITRACONAZOLE [Suspect]
     Indication: PROPHYLAXIS
     Route: 042
  2. ITRACONAZOLE [Suspect]
     Route: 042
  3. CHEMOTHERAPY [Suspect]
     Indication: HAEMATOLOGICAL MALIGNANCY
     Route: 065

REACTIONS (1)
  - SYSTEMIC MYCOSIS [None]
